FAERS Safety Report 4748000-6 (Version None)
Quarter: 2005Q3

REPORT INFORMATION
  Report Type: 
  Country: None (occurrence: None)
  Receive Date: 20050817
  Receipt Date: 20050812
  Transmission Date: 20060218
  Serious: Yes (Other)
  Sender: FDA-Public Use
  Company Number: 005424

PATIENT
  Sex: Female

DRUGS (5)
  1. MEDROXYPROGESTERONE ACETATE [Suspect]
     Dosage: ORAL
     Route: 048
     Dates: start: 20010101
  2. MEDROXYPROGESTERONE ACETATE [Suspect]
     Dosage: ORAL
     Route: 048
     Dates: start: 19980101, end: 20010101
  3. FEMHRT [Suspect]
     Dosage: ORAL
     Route: 048
     Dates: start: 20001201, end: 20010101
  4. PREMARIN [Suspect]
     Dosage: ORAL
     Route: 048
     Dates: start: 20010101
  5. PROVERA [Suspect]
     Dosage: ORAL
     Route: 048
     Dates: start: 20010101

REACTIONS (1)
  - BREAST CANCER FEMALE [None]
